FAERS Safety Report 11516315 (Version 2)
Quarter: 2015Q3

REPORT INFORMATION
  Report Type: Spontaneous
  Country: US (occurrence: None)
  Receive Date: 20150916
  Receipt Date: 20150916
  Transmission Date: 20151125
  Serious: No
  Sender: FDA-Public Use
  Company Number: None

PATIENT
  Age: 46 Year
  Sex: Male

DRUGS (13)
  1. DEXAMETHASON [Concomitant]
     Active Substance: DEXAMETHASONE
  2. TEMOZOLAMIDE 250MG TEVA [Suspect]
     Active Substance: TEMOZOLOMIDE
     Indication: NEOPLASM MALIGNANT
     Dosage: TEMOZOLOMIDE 455MG DAILY FOR 5 DAYS PO
     Route: 048
     Dates: start: 20150818
  3. LEVETIRACETA [Concomitant]
  4. LORAZEPAM. [Concomitant]
     Active Substance: LORAZEPAM
  5. OXYCODONE AND ACETAMINOPHEN [Concomitant]
     Active Substance: ACETAMINOPHEN\OXYCODONE\OXYCODONE HYDROCHLORIDE
  6. FAMOTIDINE. [Concomitant]
     Active Substance: FAMOTIDINE
  7. ACETAZOLAMID [Concomitant]
     Active Substance: ACETAZOLAMIDE
  8. ONDANSETRON [Concomitant]
     Active Substance: ONDANSETRON
  9. ZOLPIDEM [Concomitant]
     Active Substance: ZOLPIDEM\ZOLPIDEM TARTRATE
  10. DIVALPROEX [Concomitant]
     Active Substance: DIVALPROEX SODIUM
  11. SSD CRE 1% [Concomitant]
  12. PROCHLORPER [Concomitant]
  13. SULFAMETHOXAZOLE-TRIMETHOPRIM (SMZ) [Concomitant]
     Active Substance: SULFAMETHOXAZOLE\TRIMETHOPRIM

REACTIONS (2)
  - Seizure [None]
  - Dyspnoea [None]
